FAERS Safety Report 8288039-X (Version None)
Quarter: 2012Q2

REPORT INFORMATION
  Report Type: 
  Country: None (occurrence: None)
  Receive Date: 20120416
  Receipt Date: 20120410
  Transmission Date: 20120825
  Serious: Yes (Hospitalization)
  Sender: FDA-Public Use
  Company Number: NL-GLAXOSMITHKLINE-B0795127A

PATIENT
  Sex: Female
  Weight: 3 kg

DRUGS (5)
  1. KEPPRA [Suspect]
     Indication: EPILEPSY
     Route: 064
  2. FOLIC ACID [Concomitant]
     Dosage: 5MG PER DAY
     Route: 064
  3. FYTOMENADION [Concomitant]
     Route: 064
  4. LAMOTRGINE [Suspect]
     Indication: EPILEPSY
     Dosage: 50MG THREE TIMES PER DAY
     Route: 064
  5. FERROUS FUMARATE [Concomitant]

REACTIONS (2)
  - HYPOVENTILATION [None]
  - FOETAL EXPOSURE DURING PREGNANCY [None]
